FAERS Safety Report 24557235 (Version 1)
Quarter: 2024Q4

REPORT INFORMATION
  Report Type: Spontaneous
  Country: JP (occurrence: JP)
  Receive Date: 20241028
  Receipt Date: 20241028
  Transmission Date: 20250114
  Serious: Yes (Death)
  Sender: PFIZER
  Company Number: JP-PFIZER INC-PV202400136402

PATIENT
  Age: 8 Decade
  Sex: Male

DRUGS (8)
  1. FOSFLUCONAZOLE [Suspect]
     Active Substance: FOSFLUCONAZOLE
     Indication: Candida infection
     Dosage: UNK
  2. FOSFLUCONAZOLE [Suspect]
     Active Substance: FOSFLUCONAZOLE
     Indication: Device related infection
  3. VORICONAZOLE [Suspect]
     Active Substance: VORICONAZOLE
     Indication: Candida infection
     Dosage: UNK
  4. VORICONAZOLE [Suspect]
     Active Substance: VORICONAZOLE
     Indication: Device related infection
  5. MICAFUNGIN [Suspect]
     Active Substance: MICAFUNGIN SODIUM
     Indication: Device related infection
     Dosage: UNK
  6. MICAFUNGIN [Suspect]
     Active Substance: MICAFUNGIN SODIUM
     Indication: Candida infection
  7. PIPERACILLIN SODIUM\TAZOBACTAM SODIUM [Concomitant]
     Active Substance: PIPERACILLIN SODIUM\TAZOBACTAM SODIUM
  8. METHYLPREDNISOLONE SODIUM SUCCINATE [Concomitant]
     Active Substance: METHYLPREDNISOLONE SODIUM SUCCINATE

REACTIONS (1)
  - Drug ineffective [Fatal]
